FAERS Safety Report 7319598-9 (Version None)
Quarter: 2011Q1

REPORT INFORMATION
  Report Type: 
  Country: None (occurrence: None)
  Receive Date: 20110228
  Receipt Date: 20100607
  Transmission Date: 20110831
  Serious: No
  Sender: FDA-Public Use
  Company Number: A0863353A

PATIENT
  Age: 49 Year
  Sex: Female

DRUGS (1)
  1. LAMOTRIGINE [Suspect]
     Indication: DEPRESSION
     Dosage: 100MG PER DAY
     Route: 048

REACTIONS (4)
  - MYALGIA [None]
  - PAIN IN EXTREMITY [None]
  - LYMPHADENOPATHY [None]
  - NON-CARDIAC CHEST PAIN [None]
